FAERS Safety Report 19304927 (Version 1)
Quarter: 2021Q2

REPORT INFORMATION
  Report Type: Spontaneous
  Country: US (occurrence: US)
  Receive Date: 20210526
  Receipt Date: 20210526
  Transmission Date: 20210717
  Serious: No
  Sender: FDA-Public Use
  Company Number: US-TEVA-2021-US-1911030

PATIENT
  Age: 74 Year
  Sex: Female

DRUGS (1)
  1. CLONIDINE HCL [Suspect]
     Active Substance: CLONIDINE HYDROCHLORIDE
     Route: 065

REACTIONS (6)
  - Dry mouth [Unknown]
  - Gingival disorder [Unknown]
  - Peripheral swelling [Unknown]
  - Alopecia [Unknown]
  - Fatigue [Unknown]
  - Dry eye [Unknown]
